FAERS Safety Report 22009556 (Version 1)
Quarter: 2023Q1

REPORT INFORMATION
  Report Type: Spontaneous
  Country: DE (occurrence: DE)
  Receive Date: 20230220
  Receipt Date: 20230220
  Transmission Date: 20230418
  Serious: Yes (Congenital Anomaly)
  Sender: FDA-Public Use
  Company Number: None

PATIENT
  Sex: Male
  Weight: 3.61 kg

DRUGS (4)
  1. ESCITALOPRAM [Suspect]
     Active Substance: ESCITALOPRAM OXALATE
     Dosage: 20 (MG/D (BIS 5) )/ NO INTAKE FROM GW 8 UNTIL 27
     Route: 064
     Dates: start: 20210423, end: 20220208
  2. CANDESARTAN [Suspect]
     Active Substance: CANDESARTAN
     Dosage: 16 (MG/D )
     Route: 064
     Dates: start: 20210423, end: 20210615
  3. INDAPAMIDE [Suspect]
     Active Substance: INDAPAMIDE
     Dosage: 1.5 (MG/D)
     Route: 064
     Dates: start: 20210423, end: 20210615
  4. ASPIRIN [Concomitant]
     Active Substance: ASPIRIN
     Dosage: 150 (MG/D (2X75) )/ PROPHYLAXIS PRE-ECLAMPSIA
     Route: 064

REACTIONS (2)
  - Foetal exposure during pregnancy [Unknown]
  - Ventricular septal defect [Unknown]
